FAERS Safety Report 5847655-2 (Version None)
Quarter: 2008Q3

REPORT INFORMATION
  Report Type: 
  Country: None (occurrence: None)
  Receive Date: 20080818
  Receipt Date: 20080808
  Transmission Date: 20090109
  Serious: Yes (Hospitalization)
  Sender: FDA-Public Use
  Company Number: BR-ABBOTT-08P-020-0469889-00

PATIENT
  Age: 28 Year
  Sex: Female
  Weight: 55 kg

DRUGS (2)
  1. DEPAKOTE ER [Suspect]
     Indication: EPILEPSY
     Dosage: ABOUT 1500 MG
     Route: 048
     Dates: start: 20070201
  2. OXCARBAZEPINE [Concomitant]
     Indication: EPILEPSY
     Route: 048

REACTIONS (11)
  - ALOPECIA [None]
  - APPETITE DISORDER [None]
  - DIZZINESS [None]
  - GASTRIC DISORDER [None]
  - GASTRITIS [None]
  - LIVER DISORDER [None]
  - MALAISE [None]
  - NAUSEA [None]
  - PLATELET COUNT DECREASED [None]
  - TREMOR [None]
  - WEIGHT DECREASED [None]
